FAERS Safety Report 11886428 (Version 1)
Quarter: 2016Q1

REPORT INFORMATION
  Report Type: Spontaneous
  Country: FR (occurrence: FR)
  Receive Date: 20160104
  Receipt Date: 20160104
  Transmission Date: 20160526
  Serious: Yes (Hospitalization, Other)
  Sender: FDA-Public Use
  Company Number: FR-BRISTOL-MYERS SQUIBB COMPANY-10947232

PATIENT
  Age: 0 Day
  Sex: Female
  Weight: 3.52 kg

DRUGS (6)
  1. I RON [Concomitant]
     Active Substance: FERROUS FUMARATE
     Indication: PRODUCT USED FOR UNKNOWN INDICATION
     Dosage: UNK
     Route: 064
     Dates: end: 20000214
  2. VIRACEPT [Suspect]
     Active Substance: NELFINAVIR MESYLATE
     Indication: PRODUCT USED FOR UNKNOWN INDICATION
     Dosage: 1250 MG, BID
     Route: 064
     Dates: end: 20000214
  3. ZERIT [Suspect]
     Active Substance: STAVUDINE
     Indication: PRODUCT USED FOR UNKNOWN INDICATION
     Dosage: 40 MG, BID
     Route: 064
     Dates: end: 20000214
  4. RETROVIR [Suspect]
     Active Substance: ZIDOVUDINE
     Indication: PRODUCT USED FOR UNKNOWN INDICATION
     Dosage: UNK
     Route: 064
     Dates: start: 20000214, end: 20000214
  5. ZERIT [Suspect]
     Active Substance: STAVUDINE
     Indication: PROPHYLAXIS
     Dosage: UNK
     Route: 048
  6. VIDEX [Suspect]
     Active Substance: DIDANOSINE
     Indication: PRODUCT USED FOR UNKNOWN INDICATION
     Dosage: 400 MG, QD
     Route: 064
     Dates: end: 20000214

REACTIONS (7)
  - Granulocytopenia [Unknown]
  - Foetal exposure during pregnancy [Unknown]
  - Platelet count decreased [Unknown]
  - Hypertriglyceridaemia [Unknown]
  - Dysmorphism [Unknown]
  - Haemangioma [Unknown]
  - Macrocytosis [Unknown]

NARRATIVE: CASE EVENT DATE: 20000214
